FAERS Safety Report 11599372 (Version 4)
Quarter: 2017Q1

REPORT INFORMATION
  Report Type: Report from Study
  Country: KR (occurrence: KR)
  Receive Date: 20151006
  Receipt Date: 20170306
  Transmission Date: 20170428
  Serious: Yes (Hospitalization)
  Sender: FDA-Public Use
  Company Number: KR-OTSUKA-JP-2014-15230

PATIENT
  Age: 76 Year
  Sex: Male

DRUGS (7)
  1. GLIATILIN [Concomitant]
     Active Substance: CHOLINE ALFOSCERATE
     Indication: COGNITIVE DISORDER
     Dosage: UNK
     Route: 065
     Dates: start: 20120917
  2. *ASPIRIN [Suspect]
     Active Substance: ASPIRIN
     Indication: CEREBRAL INFARCTION
  3. LEVOTENSION [Concomitant]
     Indication: HYPERTENSION
     Dosage: UNK
     Route: 065
     Dates: start: 20121018
  4. CALVAN [Concomitant]
     Indication: HYPERTENSION
     Dosage: UNK
     Route: 065
     Dates: start: 20130419
  5. PROBUCOL [Suspect]
     Active Substance: PROBUCOL
     Indication: CEREBRAL INFARCTION
     Dosage: 250 MG, BID
     Route: 048
     Dates: start: 20120918, end: 20131213
  6. *ASPIRIN [Suspect]
     Active Substance: ASPIRIN
     Indication: TRANSIENT ISCHAEMIC ATTACK
     Dosage: 100 MG, QD
     Route: 048
     Dates: start: 20120918, end: 20131213
  7. PROBUCOL [Suspect]
     Active Substance: PROBUCOL
     Indication: TRANSIENT ISCHAEMIC ATTACK

REACTIONS (2)
  - Asthenia [Recovered/Resolved with Sequelae]
  - Humerus fracture [Recovered/Resolved]

NARRATIVE: CASE EVENT DATE: 20130723
